FAERS Safety Report 5460610-X (Version None)
Quarter: 2007Q3

REPORT INFORMATION
  Report Type: 
  Country: None (occurrence: None)
  Receive Date: 20070919
  Receipt Date: 20070910
  Transmission Date: 20080115
  Serious: Yes (Death, Life-Threatening)
  Sender: FDA-Public Use
  Company Number: JP-PFIZER INC-2007075777

PATIENT
  Sex: Male
  Weight: 59.8 kg

DRUGS (9)
  1. FRAGMIN [Suspect]
     Indication: ANTICOAGULANT THERAPY
     Dosage: DAILY DOSE:5000I.U.
     Dates: start: 20070806, end: 20070810
  2. FUTHAN [Concomitant]
     Route: 042
     Dates: start: 20070802, end: 20070822
  3. CEFAMEZIN ^KNOLL^ [Concomitant]
     Route: 042
     Dates: start: 20070801, end: 20070807
  4. MEROPEN [Concomitant]
     Route: 042
     Dates: start: 20070807, end: 20070817
  5. DIPRIVAN [Concomitant]
     Route: 042
     Dates: start: 20070801, end: 20070823
  6. OMEPRAZOLE [Concomitant]
     Route: 042
     Dates: start: 20070801, end: 20070822
  7. AMIODARONE HCL [Concomitant]
     Route: 048
     Dates: start: 20070807, end: 20070820
  8. VFEND [Concomitant]
     Route: 048
     Dates: start: 20070808, end: 20070822
  9. ISOTONIC SOLUTIONS [Concomitant]
     Route: 042

REACTIONS (2)
  - HEPARIN-INDUCED THROMBOCYTOPENIA [None]
  - MULTI-ORGAN FAILURE [None]
